FAERS Safety Report 9105960 (Version 1)
Quarter: 2013Q1

REPORT INFORMATION
  Report Type: Spontaneous
  Country: US (occurrence: US)
  Receive Date: 20130220
  Receipt Date: 20130220
  Transmission Date: 20140127
  Serious: Yes (Hospitalization)
  Sender: FDA-Public Use
  Company Number: US-ELI_LILLY_AND_COMPANY-US201302004267

PATIENT
  Sex: Male

DRUGS (1)
  1. HUMALOG LISPRO [Suspect]

REACTIONS (1)
  - Blood pressure abnormal [Unknown]
